FAERS Safety Report 8420524-X (Version None)
Quarter: 2012Q2

REPORT INFORMATION
  Report Type: 
  Country: None (occurrence: None)
  Receive Date: 20120608
  Receipt Date: 20120601
  Transmission Date: 20120825
  Serious: Yes (Hospitalization)
  Sender: FDA-Public Use
  Company Number: US-BIOGENIDEC-2012BI019674

PATIENT
  Age: 60 Year
  Sex: Female

DRUGS (1)
  1. TYSABRI [Suspect]
     Indication: MULTIPLE SCLEROSIS
     Route: 042
     Dates: start: 20080908

REACTIONS (6)
  - LIMB CRUSHING INJURY [None]
  - FALL [None]
  - POST-TRAUMATIC NECK SYNDROME [None]
  - PAIN [None]
  - TREMOR [None]
  - PNEUMONIA [None]
